FAERS Safety Report 10892397 (Version 4)
Quarter: 2015Q2

REPORT INFORMATION
  Report Type: Spontaneous
  Country: BE (occurrence: BE)
  Receive Date: 20150306
  Receipt Date: 20150603
  Transmission Date: 20150821
  Serious: Yes (Other)
  Sender: FDA-Public Use
  Company Number: BE-ASTRAZENECA-2015SE19958

PATIENT
  Age: 66 Year
  Sex: Male

DRUGS (6)
  1. ASAFLOW [Concomitant]
     Active Substance: ASPIRIN
  2. BISOPROLOL [Concomitant]
     Active Substance: BISOPROLOL
  3. DEPAKINE [Concomitant]
     Active Substance: VALPROATE SODIUM
     Indication: MIGRAINE
  4. APOCARD [Concomitant]
     Active Substance: FLECAINIDE ACETATE
  5. NEXIAM [Suspect]
     Active Substance: ESOMEPRAZOLE
     Route: 048
     Dates: start: 2013, end: 2015
  6. PANTOMED [Suspect]
     Active Substance: DEXPANTHENOL
     Route: 065
     Dates: start: 201211

REACTIONS (5)
  - Dysphagia [Unknown]
  - Epilepsy [Recovered/Resolved]
  - Vertigo [Unknown]
  - White matter lesion [Unknown]
  - Malaise [Unknown]

NARRATIVE: CASE EVENT DATE: 2013
